FAERS Safety Report 12714822 (Version 1)
Quarter: 2016Q3

REPORT INFORMATION
  Report Type: Spontaneous
  Country: US (occurrence: US)
  Receive Date: 20160905
  Receipt Date: 20160905
  Transmission Date: 20161109
  Serious: No
  Sender: FDA-Public Use
  Company Number: US-HORIZON-DUE-0159-2016

PATIENT
  Age: 67 Year
  Sex: Female

DRUGS (1)
  1. DUEXIS [Suspect]
     Active Substance: FAMOTIDINE\IBUPROFEN
     Indication: PAIN
     Dosage: 1 TABLET BID WHEN IN PAIN, 1 TABLET A DAY IF NOT

REACTIONS (3)
  - Drug ineffective [Unknown]
  - Off label use [Unknown]
  - Joint swelling [Unknown]
